FAERS Safety Report 24220375 (Version 9)
Quarter: 2025Q2

REPORT INFORMATION
  Report Type: Spontaneous
  Country: JP (occurrence: JP)
  Receive Date: 20240818
  Receipt Date: 20250512
  Transmission Date: 20250716
  Serious: Yes (Hospitalization)
  Sender: JOHNSON AND JOHNSON
  Company Number: JP-JNJFOC-20240707497

PATIENT
  Age: 75 Year
  Sex: Female

DRUGS (10)
  1. SELEXIPAG [Suspect]
     Active Substance: SELEXIPAG
     Indication: Pulmonary arterial hypertension
     Dosage: AFTER DINNER
     Route: 048
     Dates: start: 20240531
  2. SELEXIPAG [Suspect]
     Active Substance: SELEXIPAG
     Dosage: AFTER DINNER, BEFORE GOING TO BED
     Route: 048
     Dates: start: 20240625
  3. SELEXIPAG [Suspect]
     Active Substance: SELEXIPAG
     Route: 048
     Dates: start: 2024
  4. SELEXIPAG [Suspect]
     Active Substance: SELEXIPAG
     Route: 048
     Dates: start: 2024
  5. SELEXIPAG [Suspect]
     Active Substance: SELEXIPAG
     Route: 048
     Dates: start: 2024
  6. SELEXIPAG [Suspect]
     Active Substance: SELEXIPAG
     Dosage: AFTER BREAKFAST 0.2 MG 2 TABLETS AFTER DINNER 0.2 MG 2 TABLETS
     Route: 048
     Dates: start: 20241024
  7. SELEXIPAG [Suspect]
     Active Substance: SELEXIPAG
     Dosage: AFTER BREAKFAST 0.2 MG 3 TABLETS AFTER DINNER 0.2 MG 3 TABLETS
     Route: 048
     Dates: start: 20241126
  8. SELEXIPAG [Suspect]
     Active Substance: SELEXIPAG
     Dosage: AFTER BREAKFAST 0.2 MG 3 TABLETS AFTER DINNER 0.2 MG 3 TABLETS
     Route: 048
     Dates: start: 20241224
  9. UNSPECIFIED INGREDIENT [Concomitant]
     Active Substance: UNSPECIFIED INGREDIENT
     Indication: Product used for unknown indication
     Route: 048
  10. MOVICOLON [Concomitant]
     Active Substance: POLYETHYLENE GLYCOL 3350\POTASSIUM CHLORIDE\SODIUM BICARBONATE\SODIUM CHLORIDE
     Indication: Product used for unknown indication
     Dates: start: 202501

REACTIONS (18)
  - Bradycardia [Unknown]
  - Headache [Recovering/Resolving]
  - Abdominal pain [Recovering/Resolving]
  - Nausea [Recovering/Resolving]
  - Diarrhoea [Not Recovered/Not Resolved]
  - Malaise [Not Recovered/Not Resolved]
  - Oedema peripheral [Not Recovered/Not Resolved]
  - Abdominal distension [Not Recovered/Not Resolved]
  - Constipation [Recovering/Resolving]
  - Abdominal discomfort [Not Recovered/Not Resolved]
  - Decreased appetite [Not Recovered/Not Resolved]
  - Rash [Not Recovered/Not Resolved]
  - Herpes zoster [Recovered/Resolved]
  - Abdominal pain upper [Unknown]
  - Wound complication [Not Recovered/Not Resolved]
  - Musculoskeletal stiffness [Unknown]
  - Abdominal distension [Not Recovered/Not Resolved]
  - Dysgeusia [Recovered/Resolved]

NARRATIVE: CASE EVENT DATE: 20240101
